FAERS Safety Report 4789413-6 (Version None)
Quarter: 2005Q4

REPORT INFORMATION
  Report Type: 
  Country: None (occurrence: None)
  Receive Date: 20051004
  Receipt Date: 20050915
  Transmission Date: 20060501
  Serious: Yes (Other)
  Sender: FDA-Public Use
  Company Number: USA050495964

PATIENT
  Age: 64 Year
  Sex: Female
  Weight: 60 kg

DRUGS (2)
  1. FORTEO [Suspect]
     Indication: OSTEOPOROSIS
     Dosage: 20 UG/1 IN THE EVENING
     Dates: start: 20050412
  2. NITROGLYCERIN [Concomitant]

REACTIONS (23)
  - ALOPECIA [None]
  - ASTHENIA [None]
  - BONE PAIN [None]
  - CHEST PAIN [None]
  - DYSPHAGIA [None]
  - FATIGUE [None]
  - GASTROINTESTINAL HYPOMOTILITY [None]
  - HEPATIC CYST [None]
  - HIATUS HERNIA [None]
  - INSOMNIA [None]
  - MALNUTRITION [None]
  - MUSCLE SPASMS [None]
  - NAIL DISORDER [None]
  - NECK PAIN [None]
  - ODYNOPHAGIA [None]
  - OESOPHAGEAL SPASM [None]
  - ORAL INTAKE REDUCED [None]
  - PHARMACEUTICAL PRODUCT COMPLAINT [None]
  - POST PROCEDURAL HAEMORRHAGE [None]
  - PROCEDURAL PAIN [None]
  - REGURGITATION OF FOOD [None]
  - VOMITING [None]
  - WEIGHT DECREASED [None]
